FAERS Safety Report 18301029 (Version 3)
Quarter: 2021Q4

REPORT INFORMATION
  Report Type: Other
  Country: JP (occurrence: JP)
  Receive Date: 20200923
  Receipt Date: 20211103
  Transmission Date: 20220303
  Serious: Yes (Death)
  Sender: FDA-Public Use
  Company Number: JP-CHUGAI-A2020041577ROCHE

PATIENT
  Age: 80 Year
  Sex: Female

DRUGS (17)
  1. ATEZOLIZUMAB [Suspect]
     Active Substance: ATEZOLIZUMAB
     Indication: Non-small cell lung cancer
     Dosage: DOSE INTERVAL UNCERTAINTY
     Route: 041
     Dates: start: 20200331, end: 20200720
  2. BEVACIZUMAB [Suspect]
     Active Substance: BEVACIZUMAB
     Indication: Non-small cell lung cancer
     Dosage: DOSE INTERVAL UNCERTAINTY
     Route: 041
     Dates: start: 20200331, end: 20200720
  3. PREDONINE [Suspect]
     Active Substance: PREDNISOLONE
     Indication: Malaise
     Dosage: DOSE INTERVAL UNCERTAINTY
     Route: 065
     Dates: start: 20200720, end: 20200820
  4. PREDONINE [Suspect]
     Active Substance: PREDNISOLONE
     Indication: Decreased appetite
  5. NAPROXEN SODIUM [Suspect]
     Active Substance: NAPROXEN SODIUM
     Indication: Product used for unknown indication
     Dosage: DOSE INTERVAL UNCERTAINTY
     Route: 048
     Dates: start: 20200311, end: 20200820
  6. CARBOPLATIN [Concomitant]
     Active Substance: CARBOPLATIN
     Indication: Non-small cell lung cancer
     Dosage: DOSE INTERVAL UNCERTAINTY
     Route: 041
     Dates: start: 20200331, end: 20200623
  7. PACLITAXEL [Concomitant]
     Active Substance: PACLITAXEL
     Indication: Non-small cell lung cancer
     Dosage: DOSE INTERVAL UNCERTAINTY
     Route: 041
     Dates: start: 20200331, end: 20200623
  8. LEVOTHYROXINE [Concomitant]
     Active Substance: LEVOTHYROXINE
     Dosage: DOSE INTERVAL UNCERTAINTY
     Route: 065
     Dates: start: 20200428, end: 20200820
  9. AMBROXOL HYDROCHLORIDE [Concomitant]
     Active Substance: AMBROXOL HYDROCHLORIDE
     Dosage: DOSE INTERVAL UNCERTAINTY
     Route: 065
     Dates: end: 20200820
  10. FUROSEMIDE [Concomitant]
     Active Substance: FUROSEMIDE
     Dosage: DOSE INTERVAL UNCERTAINTY
     Route: 065
     Dates: start: 20200323, end: 20200820
  11. CODEINE PHOSPHATE [Concomitant]
     Active Substance: CODEINE PHOSPHATE
     Dosage: DOSE INTERVAL UNCERTAINTY
     Route: 065
     Dates: start: 20200220, end: 20200820
  12. CALONAL [Concomitant]
     Active Substance: ACETAMINOPHEN
     Dosage: DOSE INTERVAL UNCERTAINTY
     Route: 065
     Dates: start: 20200220, end: 20200820
  13. PROMAC (JAPAN) [Concomitant]
     Indication: Stomatitis
     Dosage: DOSE INTERVAL UNCERTAINTY
     Route: 065
     Dates: end: 20200820
  14. LANSOPRAZOLE [Concomitant]
     Active Substance: LANSOPRAZOLE
     Indication: Prophylaxis
     Dosage: DOSE INTERVAL UNCERTAINTY
     Route: 065
     Dates: start: 20200311, end: 20200820
  15. REBAMIPIDE [Concomitant]
     Active Substance: REBAMIPIDE
     Indication: Prophylaxis
     Dosage: DOSE INTERVAL UNCERTAINTY
     Route: 065
     Dates: start: 20200311, end: 20200820
  16. SULFAMETHOXAZOLE\TRIMETHOPRIM [Concomitant]
     Active Substance: SULFAMETHOXAZOLE\TRIMETHOPRIM
     Route: 048
     Dates: end: 20200820
  17. MEDICON TABLETS (JAPAN) [Concomitant]
     Dosage: DOSE INTERVAL UNCERTAINTY
     Route: 065
     Dates: start: 20200221, end: 20200820

REACTIONS (10)
  - Sudden death [Fatal]
  - Haemoptysis [Fatal]
  - Haemoptysis [Unknown]
  - Decreased appetite [Unknown]
  - Constipation [Unknown]
  - Taste disorder [Unknown]
  - Vomiting [Unknown]
  - Diarrhoea [Unknown]
  - Stomatitis [Unknown]
  - Malaise [Unknown]

NARRATIVE: CASE EVENT DATE: 20200403
